FAERS Safety Report 5335858-5 (Version None)
Quarter: 2007Q2

REPORT INFORMATION
  Report Type: 
  Country: None (occurrence: None)
  Receive Date: 20070301
  Receipt Date: 20060615
  Transmission Date: 20071010
  Serious: No
  Sender: FDA-Public Use
  Company Number: 226359

PATIENT
  Age: 16 Year
  Sex: Female

DRUGS (6)
  1. NUTROPIN [Suspect]
     Indication: HYPOTHALAMO-PITUITARY DISORDER
     Dosage: 6.425 MG, 6/WEEK, SUBCUTANEOUS
     Route: 058
     Dates: start: 19930609
  2. ADVAIR DISKUS (FLUTICASONE PROPIONATE, SALMETEROL XINAFOATE) [Concomitant]
  3. ZOLOFT [Concomitant]
  4. ALBUTEROL INHALER (ALBUTEROL/ALBUTEROL SULFATE) [Concomitant]
  5. SYNTHROID [Concomitant]
  6. ESTROGEN (ESTROGENS NOS) [Concomitant]

REACTIONS (1)
  - EPIPHYSIOLYSIS [None]
